FAERS Safety Report 5786402-X (Version None)
Quarter: 2008Q2

REPORT INFORMATION
  Report Type: 
  Country: None (occurrence: None)
  Receive Date: 20080624
  Receipt Date: 20080612
  Transmission Date: 20081010
  Serious: Yes (Other)
  Sender: FDA-Public Use
  Company Number: IL-WYE-H04494708

PATIENT
  Age: 19 Year
  Sex: Male

DRUGS (1)
  1. EFFEXOR XR [Suspect]
     Indication: PANIC ATTACK

REACTIONS (4)
  - ANXIETY [None]
  - FEAR [None]
  - SELF-INJURIOUS IDEATION [None]
  - SUICIDAL IDEATION [None]
